FAERS Safety Report 4579405-4 (Version None)
Quarter: 2005Q1

REPORT INFORMATION
  Report Type: 
  Country: None (occurrence: None)
  Receive Date: 20050209
  Receipt Date: 20050126
  Transmission Date: 20050727
  Serious: Yes (Hospitalization, Other)
  Sender: FDA-Public Use
  Company Number: US_0502111680

PATIENT
  Age: 41 Year
  Sex: Female
  Weight: 66 kg

DRUGS (3)
  1. HUMALOG [Suspect]
     Indication: DIABETES MELLITUS
     Dosage: 5 U/3 DAY
     Dates: start: 19980101
  2. HUMULIN N [Suspect]
     Indication: DIABETES MELLITUS
     Dosage: 30 U/2 DAY
     Dates: start: 19850101
  3. HUMULIN R [Suspect]
     Indication: DIABETES MELLITUS

REACTIONS (4)
  - BLINDNESS [None]
  - BLOOD GLUCOSE INCREASED [None]
  - DEHYDRATION [None]
  - MYOCARDIAL INFARCTION [None]
